FAERS Safety Report 15997987 (Version 21)
Quarter: 2020Q3

REPORT INFORMATION
  Report Type: Spontaneous
  Country: US (occurrence: US)
  Receive Date: 20190222
  Receipt Date: 20200825
  Transmission Date: 20201102
  Serious: Yes (Hospitalization, Other)
  Sender: FDA-Public Use
  Company Number: US-ACTELION-A-US2019-186468

PATIENT
  Age: 57 Year
  Sex: Female
  Weight: 75.28 kg

DRUGS (8)
  1. TADALAFIL. [Concomitant]
     Active Substance: TADALAFIL
     Dosage: 40 MG, QD
     Dates: start: 201902
  2. BABY ASPIRIN [Concomitant]
     Active Substance: ASPIRIN
  3. OPSUMIT [Suspect]
     Active Substance: MACITENTAN
     Indication: PULMONARY ARTERIAL HYPERTENSION
     Dosage: 10 MG, QD
     Route: 048
     Dates: start: 201902
  4. WARFARIN [Concomitant]
     Active Substance: WARFARIN
  5. LIPITOR [Concomitant]
     Active Substance: ATORVASTATIN CALCIUM
  6. LISINOPRIL. [Concomitant]
     Active Substance: LISINOPRIL
  7. OPSUMIT [Suspect]
     Active Substance: MACITENTAN
     Dosage: 10 MG, QD
     Route: 048
     Dates: start: 20170123
  8. ROSUVASTATIN. [Concomitant]
     Active Substance: ROSUVASTATIN

REACTIONS (24)
  - Alcohol withdrawal syndrome [Recovered/Resolved]
  - Haematemesis [Recovered/Resolved]
  - Oesophageal varices haemorrhage [Recovered/Resolved]
  - Spinal column injury [Unknown]
  - Cardiac failure [Unknown]
  - Cellulitis [Unknown]
  - Dyspnoea [Unknown]
  - Nausea [Recovered/Resolved]
  - Malaise [Unknown]
  - Feeling abnormal [Unknown]
  - Pneumonia [Unknown]
  - Varices oesophageal [Not Recovered/Not Resolved]
  - Headache [Unknown]
  - Myocardial necrosis marker increased [Unknown]
  - Cardiac pacemaker insertion [Unknown]
  - Enzyme level increased [Unknown]
  - Vomiting [Recovered/Resolved]
  - Intracardiac thrombus [Unknown]
  - Dizziness exertional [Unknown]
  - Fall [Unknown]
  - Pain in extremity [Unknown]
  - Fatigue [Unknown]
  - Cough [Unknown]
  - Procedural complication [Unknown]

NARRATIVE: CASE EVENT DATE: 20190315
